FAERS Safety Report 5275196-2 (Version None)
Quarter: 2007Q1

REPORT INFORMATION
  Report Type: 
  Country: None (occurrence: None)
  Receive Date: 20061214
  Receipt Date: 20060712
  Transmission Date: 20070707
  Serious: Yes (Hospitalization)
  Sender: FDA-Public Use
  Company Number: 2006074840

PATIENT
  Age: 71 Year
  Sex: Male
  Weight: 120.2032 kg

DRUGS (7)
  1. BEXTRA [Suspect]
     Indication: ARTHRALGIA
     Dosage: 10 MG (10 MG, 1 IN 1 D), ORAL
     Route: 048
     Dates: start: 20021112, end: 20040926
  2. ALEVE [Concomitant]
  3. ULTRAM [Concomitant]
  4. GLUCOTROL [Concomitant]
  5. GLUCOPHAGE [Concomitant]
  6. ASPIRIN [Concomitant]
  7. SYNTHROID [Concomitant]

REACTIONS (1)
  - MYOCARDIAL INFARCTION [None]
